FAERS Safety Report 5481766-9 (Version None)
Quarter: 2007Q3

REPORT INFORMATION
  Report Type: 
  Country: None (occurrence: None)
  Receive Date: 20070917
  Receipt Date: 20060912
  Transmission Date: 20080115
  Serious: Yes (Other)
  Sender: FDA-Public Use
  Company Number: S06-USA-03636-01

PATIENT
  Age: 75 Year
  Sex: Female

DRUGS (2)
  1. CELEXA [Suspect]
     Indication: DEPRESSION
     Dates: start: 20060701
  2. HYDROCHLOROTHIAZIDE [Concomitant]

REACTIONS (1)
  - BLOOD SODIUM DECREASED [None]
